FAERS Safety Report 6883835-5 (Version None)
Quarter: 2010Q3

REPORT INFORMATION
  Report Type: 
  Country: None (occurrence: None)
  Receive Date: 20100729
  Receipt Date: 20090218
  Transmission Date: 20110219
  Serious: Yes (Other)
  Sender: FDA-Public Use
  Company Number: US-PFIZER INC-2009172992

PATIENT
  Sex: Male
  Weight: 97.975 kg

DRUGS (4)
  1. CHANTIX [Suspect]
  2. PLAVIX [Concomitant]
  3. SIMVASTATIN [Concomitant]
     Indication: HYPERTENSION
  4. TOPROL-XL [Concomitant]
     Indication: HYPERTENSION

REACTIONS (3)
  - DEPRESSION [None]
  - MALAISE [None]
  - SUICIDAL IDEATION [None]
